FAERS Safety Report 23827256 (Version 1)
Quarter: 2024Q2

REPORT INFORMATION
  Report Type: Spontaneous
  Country: US (occurrence: US)
  Receive Date: 20240507
  Receipt Date: 20240507
  Transmission Date: 20240716
  Serious: No
  Sender: FDA-Public Use
  Company Number: US-INCYTE CORPORATION-2024IN004436

PATIENT

DRUGS (1)
  1. JAKAFI [Suspect]
     Active Substance: RUXOLITINIB
     Indication: Haemophagocytic lymphohistiocytosis
     Dosage: 5 MILLIGRAM, 2 TAB QAM 1TAB QPM
     Route: 048
     Dates: start: 202204

REACTIONS (10)
  - Diarrhoea [Unknown]
  - Decreased activity [Unknown]
  - Fatigue [Unknown]
  - Hypoaesthesia [Unknown]
  - Paraesthesia [Unknown]
  - Discomfort [Unknown]
  - Skin disorder [Unknown]
  - Constipation [Unknown]
  - Dyschezia [Unknown]
  - Off label use [Unknown]

NARRATIVE: CASE EVENT DATE: 20220401
